FAERS Safety Report 12964415 (Version 1)
Quarter: 2016Q4

REPORT INFORMATION
  Report Type: Report from Study
  Country: IT (occurrence: IT)
  Receive Date: 20161122
  Receipt Date: 20161122
  Transmission Date: 20170207
  Serious: Yes (Death, Life-Threatening, Hospitalization, Other)
  Sender: FDA-Public Use
  Company Number: IT-ELI_LILLY_AND_COMPANY-IT201611005401

PATIENT
  Age: 73 Year
  Sex: Male
  Weight: 85 kg

DRUGS (19)
  1. LYRICA [Concomitant]
     Active Substance: PREGABALIN
     Dosage: 300 MG, UNK
     Dates: start: 201209
  2. VALSARTAN AND HYDROCHLOROTHIAZIDE [Concomitant]
     Active Substance: HYDROCHLOROTHIAZIDE\VALSARTAN
     Dosage: 80 MG, UNK
     Dates: start: 1993
  3. SERETIDE [Concomitant]
     Active Substance: FLUTICASONE PROPIONATE\SALMETEROL XINAFOATE
     Dosage: TOTAL DAILY DOSE 50/500 MCG
     Dates: start: 201209
  4. PEMETREXED [Suspect]
     Active Substance: PEMETREXED
     Indication: LUNG NEOPLASM MALIGNANT
     Dosage: 1200 MG (500 MG/M2),Q3W
     Route: 042
     Dates: start: 20131024
  5. CRAVIT [Concomitant]
     Active Substance: LEVOFLOXACIN
     Dosage: 500 MG, UNK
     Dates: start: 20131202, end: 20131207
  6. BEVACIZUMAB [Suspect]
     Active Substance: BEVACIZUMAB
     Indication: LUNG NEOPLASM MALIGNANT
     Dosage: 15 MG/KG (1200 MG/KG), Q3W
     Route: 042
     Dates: start: 20131024
  7. SERETAIDE DISKUS [Concomitant]
     Dosage: 50/500 MCG
     Dates: start: 201209
  8. ASPIRIN                            /00002701/ [Concomitant]
     Active Substance: ASPIRIN
     Dosage: 100 MG, UNK
     Dates: start: 201209
  9. CARDIOASPIRIN [Concomitant]
     Active Substance: ASPIRIN
     Dosage: 100 MG, UNK
     Dates: start: 201209
  10. LANSOX [Concomitant]
     Active Substance: LANSOPRAZOLE
     Dosage: 160 MG, UNK
     Dates: start: 201209
  11. LANSOX [Concomitant]
     Active Substance: LANSOPRAZOLE
     Dosage: 15 MG, UNK
     Dates: start: 201209
  12. FOLINGRAV [Concomitant]
     Dosage: 400 UG, UNK
     Dates: start: 20131020
  13. LANSOPRAZOLE. [Concomitant]
     Active Substance: LANSOPRAZOLE
     Dosage: UNK
     Dates: start: 20131022
  14. MEDROL [Concomitant]
     Active Substance: METHYLPREDNISOLONE
     Dosage: 16 MG, UNK
     Dates: start: 201209
  15. MEDROL [Concomitant]
     Active Substance: METHYLPREDNISOLONE
     Dosage: 16 MG, UNK
     Dates: start: 20131106
  16. VALSARTAN AND HYDROCHLOROTHIAZIDE [Concomitant]
     Active Substance: HYDROCHLOROTHIAZIDE\VALSARTAN
     Dosage: 80 MG, UNK
     Dates: start: 20131014
  17. CARDIOASPIRIN [Concomitant]
     Active Substance: ASPIRIN
     Dosage: 100 MG, UNK
     Dates: start: 2013
  18. LANSOPRAZOLE. [Concomitant]
     Active Substance: LANSOPRAZOLE
     Dosage: 15 MG, UNK
     Dates: start: 20130922
  19. LASIX [Concomitant]
     Active Substance: FUROSEMIDE
     Dosage: 15 MG, UNK

REACTIONS (5)
  - Pneumonia [Unknown]
  - Pancytopenia [Recovered/Resolved]
  - Renal failure [Unknown]
  - Nephrotic syndrome [Fatal]
  - Respiratory failure [Recovered/Resolved]

NARRATIVE: CASE EVENT DATE: 20131104
